FAERS Safety Report 15326526 (Version 2)
Quarter: 2018Q3

REPORT INFORMATION
  Report Type: Report from Study
  Country: US (occurrence: US)
  Receive Date: 20180828
  Receipt Date: 20180907
  Transmission Date: 20181010
  Serious: Yes (Hospitalization)
  Sender: FDA-Public Use
  Company Number: US-BAYER-2018-139670

PATIENT
  Age: 66 Year
  Sex: Male

DRUGS (2)
  1. STIVARGA [Suspect]
     Active Substance: REGORAFENIB
     Indication: COLORECTAL CANCER
     Dosage: 120 MG DAILY
     Route: 048
     Dates: start: 20180726, end: 20180820
  2. STIVARGA [Suspect]
     Active Substance: REGORAFENIB
     Indication: COLORECTAL CANCER
     Dosage: 160 MG DAILY FOR 21 DAYS AND 7 DAYS OFF
     Route: 048
     Dates: start: 20180720, end: 2018

REACTIONS (12)
  - Blood glucose decreased [None]
  - Liver function test abnormal [None]
  - Chromaturia [None]
  - Dysphonia [Not Recovered/Not Resolved]
  - Cough [None]
  - Decreased appetite [None]
  - Fatigue [Not Recovered/Not Resolved]
  - Dysphonia [None]
  - Liver disorder [None]
  - Blood bilirubin increased [None]
  - Jaundice [None]
  - Malaise [None]

NARRATIVE: CASE EVENT DATE: 201807
